FAERS Safety Report 4595064-9 (Version None)
Quarter: 2005Q1

REPORT INFORMATION
  Report Type: 
  Country: None (occurrence: None)
  Receive Date: 20050224
  Receipt Date: 20050218
  Transmission Date: 20050727
  Serious: Yes (Hospitalization)
  Sender: FDA-Public Use
  Company Number: 05-02-0254

PATIENT
  Age: 36 Year
  Sex: Male

DRUGS (1)
  1. CLOZAPINE [Suspect]
     Indication: SCHIZOPHRENIA
     Dosage: 400-600 MG QD ORAL
     Route: 048
     Dates: start: 20010501, end: 20050101

REACTIONS (3)
  - COMA [None]
  - DEHYDRATION [None]
  - MENINGITIS [None]
